FAERS Safety Report 21200452 (Version 1)
Quarter: 2022Q3

REPORT INFORMATION
  Report Type: Spontaneous
  Country: US (occurrence: None)
  Receive Date: 20220810
  Receipt Date: 20220810
  Transmission Date: 20221027
  Serious: Yes (Death)
  Sender: FDA-Public Use
  Company Number: None

PATIENT
  Sex: Male

DRUGS (10)
  1. KEYTRUDA [Suspect]
     Active Substance: PEMBROLIZUMAB
     Indication: Lung neoplasm malignant
     Dosage: OTHER QUANTITY : 100MG/1ML;?OTHER FREQUENCY : EVERY 21 DAYS;?
     Route: 042
     Dates: start: 20220215, end: 20220712
  2. ALENDRONATE [Concomitant]
     Active Substance: ALENDRONATE SODIUM
  3. ALPRAZOLAM TAB 0.5MG [Concomitant]
  4. GLIMEPIRIDE [Concomitant]
     Active Substance: GLIMEPIRIDE
  5. HYDROCHLOROT TAB 25MG [Concomitant]
  6. LEVETIRACETA TAB 500MG [Concomitant]
  7. LEVOTHYROXIN TAB 25MCG [Concomitant]
  8. PREDNISONE [Concomitant]
     Active Substance: PREDNISONE
  9. STIOLTO AER 2.5-2.5 [Concomitant]
  10. VITAMIN D3 CAP 1 000UNIT [Concomitant]

REACTIONS (1)
  - Death [None]
